FAERS Safety Report 5754970-X (Version None)
Quarter: 2008Q2

REPORT INFORMATION
  Report Type: 
  Country: None (occurrence: None)
  Receive Date: 20080602
  Receipt Date: 20080521
  Transmission Date: 20081010
  Serious: Yes (Other)
  Sender: FDA-Public Use
  Company Number: US-KINGPHARMUSA00001-K200800581

PATIENT

DRUGS (2)
  1. ALTACE [Suspect]
  2. LIPITOR [Concomitant]

REACTIONS (1)
  - ARRHYTHMIA [None]
